FAERS Safety Report 4399182-X (Version None)
Quarter: 2004Q2

REPORT INFORMATION
  Report Type: 
  Country: None (occurrence: None)
  Receive Date: 20040621
  Receipt Date: 20031028
  Transmission Date: 20050107
  Serious: Yes (Other)
  Sender: FDA-Public Use
  Company Number: USA-2003-0008904

PATIENT
  Sex: Male

DRUGS (5)
  1. OXYCONTIN [Suspect]
     Indication: PAIN
     Dosage: 20 MG, BID, ORAL
     Route: 048
  2. LORTAB [Concomitant]
  3. HUMALOG [Concomitant]
  4. PROTONIX [Concomitant]
  5. VIOKASE [Concomitant]

REACTIONS (1)
  - DRUG ABUSER [None]
